FAERS Safety Report 18427016 (Version 1)
Quarter: 2020Q4

REPORT INFORMATION
  Report Type: Spontaneous
  Country: US (occurrence: US)
  Receive Date: 20201026
  Receipt Date: 20201026
  Transmission Date: 20210114
  Serious: No
  Sender: FDA-Public Use
  Company Number: US-JNJFOC-A-NJ2019-191946

PATIENT
  Age: 12 Year
  Sex: Male
  Weight: 33.11 kg

DRUGS (4)
  1. UPTRAVI [Suspect]
     Active Substance: SELEXIPAG
     Dosage: 1600 MCG, BID
     Route: 048
  2. UPTRAVI [Suspect]
     Active Substance: SELEXIPAG
     Indication: PULMONARY HYPERTENSION
     Dosage: 800 MCG, BID
     Route: 048
  3. UPTRAVI [Suspect]
     Active Substance: SELEXIPAG
     Dosage: 1400 MCG, BID
     Route: 048
  4. UPTRAVI [Suspect]
     Active Substance: SELEXIPAG
     Dosage: 1200 MCG, BID
     Route: 048

REACTIONS (6)
  - Abdominal pain upper [Unknown]
  - Therapy non-responder [Recovering/Resolving]
  - Off label use [Unknown]
  - Abdominal pain [Unknown]
  - Product use issue [Unknown]
  - Diarrhoea [Unknown]
